FAERS Safety Report 7413212-X (Version None)
Quarter: 2011Q2

REPORT INFORMATION
  Report Type: 
  Country: None (occurrence: None)
  Receive Date: 20110408
  Receipt Date: 20110408
  Transmission Date: 20111010
  Serious: Yes (Hospitalization)
  Sender: FDA-Public Use
  Company Number: None

PATIENT
  Age: 64 Year
  Sex: Male
  Weight: 89 kg

DRUGS (1)
  1. ALLOPURINOL [Suspect]
     Dosage: 300 MG EVERY DAY PO
     Route: 048
     Dates: start: 20100413, end: 20110322

REACTIONS (2)
  - TUBULOINTERSTITIAL NEPHRITIS [None]
  - NEPHRITIS [None]
